FAERS Safety Report 9912614 (Version 1)
Quarter: 2014Q1

REPORT INFORMATION
  Report Type: Spontaneous
  Country: US (occurrence: None)
  Receive Date: 20140218
  Receipt Date: 20140218
  Transmission Date: 20141002
  Serious: Yes (Hospitalization)
  Sender: FDA-Public Use
  Company Number: None

PATIENT
  Age: 14 Year
  Sex: Male
  Weight: 47.7 kg

DRUGS (4)
  1. CYCLOPHOSPHAMIDE [Suspect]
  2. CYTARABINE [Suspect]
  3. MERCAPTOPURINE [Suspect]
  4. PEG-L-ASPARAGINASE (K-H) [Suspect]

REACTIONS (4)
  - Tachycardia [None]
  - Hypotension [None]
  - Malaise [None]
  - Body temperature increased [None]
